FAERS Safety Report 7020489-1 (Version None)
Quarter: 2010Q3

REPORT INFORMATION
  Report Type: 
  Country: None (occurrence: None)
  Receive Date: 20100929
  Receipt Date: 20100916
  Transmission Date: 20110219
  Serious: Yes (Death, Other)
  Sender: FDA-Public Use
  Company Number: US-SANOFI-AVENTIS-2010SA054122

PATIENT
  Age: 79 Year
  Sex: Female

DRUGS (5)
  1. MULTAQ [Suspect]
     Indication: ATRIAL FIBRILLATION
     Route: 048
     Dates: start: 20100723, end: 20100730
  2. MULTAQ [Suspect]
     Route: 048
     Dates: start: 20100723, end: 20100730
  3. MULTAQ [Suspect]
     Route: 048
     Dates: start: 20100816, end: 20100831
  4. MULTAQ [Suspect]
     Route: 048
     Dates: start: 20100816, end: 20100831
  5. FLECAINIDE ACETATE [Suspect]
     Indication: ATRIAL FIBRILLATION
     Route: 065
     Dates: start: 20100731, end: 20100816

REACTIONS (5)
  - ATRIAL FIBRILLATION [None]
  - BRADYCARDIA [None]
  - CARDIAC FAILURE CONGESTIVE [None]
  - HYPOXIA [None]
  - OFF LABEL USE [None]
